FAERS Safety Report 10253728 (Version 1)
Quarter: 2014Q2

REPORT INFORMATION
  Report Type: Spontaneous
  Country: US (occurrence: US)
  Receive Date: 20140623
  Receipt Date: 20140623
  Transmission Date: 20141212
  Serious: Yes (Death, Other)
  Sender: FDA-Public Use
  Company Number: US-BAXTER-2014BAX032469

PATIENT
  Age: 67 Year
  Sex: Female

DRUGS (4)
  1. GAMMAGARD LIQUID [Suspect]
     Indication: CREUTZFELDT-JAKOB DISEASE
     Route: 042
  2. LACOSAMIDE [Suspect]
     Indication: CONVULSION
     Route: 065
  3. PHENYTOIN [Suspect]
     Indication: CONVULSION
     Route: 065
  4. METHYLPREDNISOLONE [Suspect]
     Indication: CREUTZFELDT-JAKOB DISEASE
     Route: 042

REACTIONS (2)
  - Drug ineffective [Not Recovered/Not Resolved]
  - Creutzfeldt-Jakob disease [Fatal]
